FAERS Safety Report 14419530 (Version 1)
Quarter: 2018Q1

REPORT INFORMATION
  Report Type: Spontaneous
  Country: JP (occurrence: JP)
  Receive Date: 20180122
  Receipt Date: 20180122
  Transmission Date: 20180509
  Serious: Yes (Other)
  Sender: FDA-Public Use
  Company Number: JP-PFIZER INC-2018020975

PATIENT
  Age: 62 Year
  Sex: Female
  Weight: 81 kg

DRUGS (13)
  1. PACLITAXEL HOSPIRA [Suspect]
     Active Substance: PACLITAXEL
     Indication: OVARIAN CANCER
     Dosage: 60 MG/M2, CYCLIC(DAY 1 / 1 WEEK)
     Dates: start: 20170515, end: 20170724
  2. PACLITAXEL HOSPIRA [Suspect]
     Active Substance: PACLITAXEL
     Dosage: 175 MG/M2, SINGLE
     Route: 042
     Dates: start: 20170920, end: 20170920
  3. CARBOPLATIN. [Suspect]
     Active Substance: CARBOPLATIN
     Indication: OVARIAN CANCER
     Dosage: AUC2 /  1 WEEK
     Route: 042
     Dates: start: 20170515, end: 20170724
  4. MAGMITT [Concomitant]
     Active Substance: MAGNESIUM OXIDE
     Dosage: UNK
     Route: 048
     Dates: start: 2012
  5. CARBOPLATIN. [Suspect]
     Active Substance: CARBOPLATIN
     Dosage: AUC5
     Route: 042
     Dates: start: 20170807, end: 20170807
  6. CARBOPLATIN. [Suspect]
     Active Substance: CARBOPLATIN
     Dosage: AUC5
     Route: 042
     Dates: start: 20170921, end: 20170921
  7. CARBOPLATIN. [Suspect]
     Active Substance: CARBOPLATIN
     Dosage: AUC2 / 1 WEEK
     Route: 042
     Dates: start: 20170828, end: 20170911
  8. AMARYL [Concomitant]
     Active Substance: GLIMEPIRIDE
     Dosage: UNK
     Route: 048
     Dates: start: 20150407
  9. GLACTIV [Concomitant]
     Active Substance: SITAGLIPTIN
     Dosage: UNK
     Route: 048
     Dates: start: 20150330
  10. PACLITAXEL HOSPIRA [Suspect]
     Active Substance: PACLITAXEL
     Dosage: 60 MG/M2, CYCLIC (DAY 1 / 1 WEEK)
     Route: 042
     Dates: start: 20170828, end: 20170911
  11. FAMOTIDINE. [Concomitant]
     Active Substance: FAMOTIDINE
     Dosage: UNK
     Route: 048
     Dates: start: 20150611
  12. MICARDIS [Concomitant]
     Active Substance: TELMISARTAN
     Route: 048
  13. PACLITAXEL HOSPIRA [Suspect]
     Active Substance: PACLITAXEL
     Dosage: 175 MG/M2, SINGLE
     Route: 042
     Dates: start: 20170807, end: 20170807

REACTIONS (2)
  - Second primary malignancy [Not Recovered/Not Resolved]
  - Myelodysplastic syndrome [Not Recovered/Not Resolved]

NARRATIVE: CASE EVENT DATE: 20171005
